FAERS Safety Report 20672757 (Version 1)
Quarter: 2022Q2

REPORT INFORMATION
  Report Type: Report from Study
  Country: US (occurrence: US)
  Receive Date: 20220405
  Receipt Date: 20220405
  Transmission Date: 20220721
  Serious: Yes (Other)
  Sender: FDA-Public Use
  Company Number: US-AUROBINDO-AUR-APL-2022-010742

PATIENT
  Age: 39 Year
  Sex: Female
  Weight: 120.2 kg

DRUGS (3)
  1. BUSPIRONE HYDROCHLORIDE [Suspect]
     Active Substance: BUSPIRONE HYDROCHLORIDE
     Indication: Anxiety
     Dosage: UNK
     Route: 065
  2. TRAZODONE [Suspect]
     Active Substance: TRAZODONE HYDROCHLORIDE
     Indication: Sleep disorder
     Dosage: UNK
     Route: 065
  3. VILAZODONE [Suspect]
     Active Substance: VILAZODONE
     Indication: Depression
     Dosage: UNK
     Route: 065

REACTIONS (3)
  - Gestational diabetes [Unknown]
  - Gestational hypertension [Unknown]
  - Maternal exposure during pregnancy [Unknown]

NARRATIVE: CASE EVENT DATE: 20201117
